FAERS Safety Report 4542109-8 (Version None)
Quarter: 2004Q4

REPORT INFORMATION
  Report Type: 
  Country: None (occurrence: None)
  Receive Date: 20041230
  Receipt Date: 20041221
  Transmission Date: 20050328
  Serious: Yes (Hospitalization)
  Sender: FDA-Public Use
  Company Number: PHHO2004JP18366

PATIENT
  Age: 69 Year
  Sex: Male
  Weight: 90 kg

DRUGS (5)
  1. DIOVAN [Suspect]
     Indication: HYPERTENSION
     Dosage: 80 MG, QD
     Route: 048
     Dates: start: 20030723, end: 20040507
  2. SALOBEL [Concomitant]
     Indication: GOUT
     Dosage: 200 MG, UNK
     Route: 048
     Dates: start: 20020522, end: 20040507
  3. CALSLOT [Concomitant]
     Indication: HYPERTENSION
     Dosage: 20 MG, UNK
     Route: 048
     Dates: end: 20040507
  4. CARDENALIN [Concomitant]
     Indication: HYPERTENSION
     Dosage: 2 MG, UNK
     Route: 048
     Dates: end: 20040507
  5. LIPANTIL [Concomitant]
     Dosage: 300 MG, UNK
     Route: 048
     Dates: end: 20040507

REACTIONS (1)
  - AORTIC DISSECTION [None]
